FAERS Safety Report 7832763-7 (Version None)
Quarter: 2011Q4

REPORT INFORMATION
  Report Type: 
  Country: None (occurrence: None)
  Receive Date: 20111024
  Receipt Date: 20111012
  Transmission Date: 20120403
  Serious: Yes (Hospitalization)
  Sender: FDA-Public Use
  Company Number: US-BIOGENIDEC-2011BI039637

PATIENT
  Age: 34 Year
  Sex: Male

DRUGS (1)
  1. TYSABRI [Suspect]
     Indication: MULTIPLE SCLEROSIS
     Route: 042
     Dates: start: 20070717

REACTIONS (5)
  - URINARY TRACT INFECTION [None]
  - GAIT DISTURBANCE [None]
  - THINKING ABNORMAL [None]
  - MULTIPLE SCLEROSIS RELAPSE [None]
  - COORDINATION ABNORMAL [None]
